FAERS Safety Report 6585197-X (Version None)
Quarter: 2010Q1

REPORT INFORMATION
  Report Type: 
  Country: None (occurrence: None)
  Receive Date: 20100204
  Receipt Date: 20100125
  Transmission Date: 20100710
  Serious: Yes (Other)
  Sender: FDA-Public Use
  Company Number: OSCN-PR-0705S-0220

PATIENT
  Age: 17 Year
  Sex: Male

DRUGS (1)
  1. OMNISCAN [Suspect]
     Indication: DRUG USE FOR UNKNOWN INDICATION
     Dosage: CUMULATIVE DOSE 0.1 MMOL/KG, SINGLE DOSE, I.V.
     Route: 042

REACTIONS (2)
  - INTESTINAL PERFORATION [None]
  - NEPHROGENIC SYSTEMIC FIBROSIS [None]
